FAERS Safety Report 8317635-6 (Version None)
Quarter: 2012Q2

REPORT INFORMATION
  Report Type: 
  Country: None (occurrence: None)
  Receive Date: 20120427
  Receipt Date: 20110920
  Transmission Date: 20120825
  Serious: No
  Sender: FDA-Public Use
  Company Number: US-GLAXOSMITHKLINE-A0945308A

PATIENT
  Age: 71 Year
  Sex: Female

DRUGS (8)
  1. LIPITOR [Concomitant]
  2. THYROID TAB [Concomitant]
  3. ELMIRON [Concomitant]
  4. FIORINAL W/CODEINE [Concomitant]
  5. ZOFRAN [Suspect]
     Indication: PROPHYLAXIS OF NAUSEA AND VOMITING
     Dosage: 4MG TWICE PER DAY
     Route: 048
  6. DOXYCLINE [Concomitant]
  7. PREDNISONE [Concomitant]
  8. MACRODANTIN [Concomitant]

REACTIONS (1)
  - HEADACHE [None]
